FAERS Safety Report 15131096 (Version 1)
Quarter: 2018Q4

REPORT INFORMATION
  Report Type: Spontaneous
  Country: DE (occurrence: DE)
  Receive Date: 20180711
  Receipt Date: 20180711
  Transmission Date: 20190204
  Serious: Yes (Hospitalization)
  Sender: FDA-Public Use
  Company Number: DE-B. BRAUN MEDICAL INC.-2051749

PATIENT
  Age: 54 Year
  Sex: Female

DRUGS (5)
  1. VIANI [FLUTICASONE PROPIONATE, SALMETEROL XINAFOATE] [Concomitant]
  2. CIPROFLOXACIN. [Suspect]
     Active Substance: CIPROFLOXACIN
     Route: 065
  3. BISOPROLOL [Concomitant]
     Active Substance: BISOPROLOL
  4. OMEPRAZOLE. [Concomitant]
     Active Substance: OMEPRAZOLE
  5. METRONIDAZOLE INJECTION USP (5 MG/ML) IN PAB? PLASTIC CONTAINER (NDA 0 [Suspect]
     Active Substance: METRONIDAZOLE
     Route: 065

REACTIONS (2)
  - Faecal volume decreased [Unknown]
  - Nausea [Unknown]
